FAERS Safety Report 17968964 (Version 3)
Quarter: 2024Q3

REPORT INFORMATION
  Report Type: Spontaneous
  Country: US (occurrence: US)
  Receive Date: 20200701
  Receipt Date: 20240710
  Transmission Date: 20241016
  Serious: No
  Sender: PIERRE FABRE MEDICAMENT
  Company Number: US-PFM-2019-06487

PATIENT
  Sex: Female
  Weight: 14.1 kg

DRUGS (3)
  1. HEMANGEOL [Suspect]
     Active Substance: PROPRANOLOL HYDROCHLORIDE
     Indication: Infantile haemangioma
     Dosage: 0.5 ML, TID (3/DAY)
     Route: 048
     Dates: start: 20190507
  2. HEMANGEOL [Suspect]
     Active Substance: PROPRANOLOL HYDROCHLORIDE
     Dosage: 1 ML, BID (2/DAY)
     Route: 048
  3. HEMANGEOL [Suspect]
     Active Substance: PROPRANOLOL HYDROCHLORIDE
     Dosage: 2.5ML BY MOUTH 2 TIMES DAILY
     Route: 048
     Dates: start: 202307

REACTIONS (7)
  - Haemangioma [Unknown]
  - Condition aggravated [Unknown]
  - Drug titration [Unknown]
  - Therapy interrupted [Unknown]
  - Prescribed underdose [Unknown]
  - Inappropriate schedule of product administration [Unknown]
  - Off label use [Unknown]
